FAERS Safety Report 9785490 (Version 1)
Quarter: 2013Q4

REPORT INFORMATION
  Report Type: Report from Study
  Country: US (occurrence: US)
  Receive Date: 20131227
  Receipt Date: 20131227
  Transmission Date: 20140711
  Serious: Yes (Hospitalization)
  Sender: FDA-Public Use
  Company Number: US-SA-2013SA135281

PATIENT
  Age: 63 Year
  Sex: Female
  Weight: 124 kg

DRUGS (7)
  1. LANTUS [Suspect]
     Route: 065
     Dates: start: 20130801
  2. METFORMIN [Suspect]
     Route: 065
  3. INSULIN ASPART [Concomitant]
     Dates: start: 20130801
  4. ALL OTHER THERAPEUTIC PRODUCTS [Concomitant]
  5. ACE INHIBITOR NOS [Concomitant]
  6. OMEPRAZOLE [Concomitant]
  7. ASA [Concomitant]

REACTIONS (3)
  - Endometrial cancer [Unknown]
  - Postmenopausal haemorrhage [Unknown]
  - Uterine polyp [Unknown]
